FAERS Safety Report 8110156-5 (Version None)
Quarter: 2012Q1

REPORT INFORMATION
  Report Type: 
  Country: None (occurrence: None)
  Receive Date: 20120202
  Receipt Date: 20120125
  Transmission Date: 20120608
  Serious: No
  Sender: FDA-Public Use
  Company Number: US-AMGEN-USASP2012005073

PATIENT
  Sex: Female

DRUGS (1)
  1. ENBREL [Suspect]
     Indication: RHEUMATOID ARTHRITIS
     Dosage: 100 MG, QWK
     Dates: start: 20110901

REACTIONS (6)
  - MUSCULOSKELETAL STIFFNESS [None]
  - NODULE [None]
  - PAIN [None]
  - JOINT RANGE OF MOTION DECREASED [None]
  - OEDEMA PERIPHERAL [None]
  - PAIN IN EXTREMITY [None]
